FAERS Safety Report 13638281 (Version 1)
Quarter: 2017Q2

REPORT INFORMATION
  Report Type: Spontaneous
  Country: US (occurrence: US)
  Receive Date: 20170609
  Receipt Date: 20170609
  Transmission Date: 20170830
  Serious: No
  Sender: FDA-Public Use
  Company Number: US-PFIZER INC-2017252540

PATIENT
  Age: 64 Year
  Sex: Female

DRUGS (2)
  1. ADVIL [Suspect]
     Active Substance: IBUPROFEN
     Indication: BACK PAIN
  2. ASPIRIN /00002701/ [Suspect]
     Active Substance: ASPIRIN
     Indication: BACK PAIN

REACTIONS (2)
  - Drug ineffective [Unknown]
  - Hyperhidrosis [Unknown]
